FAERS Safety Report 13206196 (Version 1)
Quarter: 2017Q1

REPORT INFORMATION
  Report Type: Spontaneous
  Country: US (occurrence: US)
  Receive Date: 20170209
  Receipt Date: 20170209
  Transmission Date: 20170428
  Serious: No
  Sender: FDA-Public Use
  Company Number: US-SA-2017SA009383

PATIENT
  Age: 72 Year
  Sex: Female
  Weight: 64.41 kg

DRUGS (2)
  1. PRALUENT [Suspect]
     Active Substance: ALIROCUMAB
     Indication: HYPERCHOLESTEROLAEMIA
     Route: 048
     Dates: start: 20160913, end: 20170116
  2. ALIROCUMAB PREFILLED PEN [Concomitant]
     Active Substance: ALIROCUMAB
     Dates: start: 20160913, end: 20170116

REACTIONS (7)
  - Eating disorder [Unknown]
  - Memory impairment [Unknown]
  - Speech disorder [Unknown]
  - Weight increased [Unknown]
  - Abdominal discomfort [Unknown]
  - Musculoskeletal pain [Unknown]
  - Product use issue [Unknown]

NARRATIVE: CASE EVENT DATE: 20160913
